FAERS Safety Report 4882966-9 (Version None)
Quarter: 2006Q1

REPORT INFORMATION
  Report Type: 
  Country: None (occurrence: None)
  Receive Date: 20060118
  Receipt Date: 20051214
  Transmission Date: 20060701
  Serious: Yes (Hospitalization)
  Sender: FDA-Public Use
  Company Number: AR-BRISTOL-MYERS SQUIBB COMPANY-13219514

PATIENT
  Age: 46 Year
  Sex: Male

DRUGS (1)
  1. WARFARIN SODIUM [Suspect]
     Route: 048

REACTIONS (3)
  - ACUTE MYOCARDIAL INFARCTION [None]
  - ANAEMIA [None]
  - HAEMORRHAGIC DIATHESIS [None]
